FAERS Safety Report 10723693 (Version 1)
Quarter: 2015Q1

REPORT INFORMATION
  Report Type: Spontaneous
  Country: FR (occurrence: None)
  Receive Date: 20150115
  Receipt Date: 20150115
  Transmission Date: 20150721
  Serious: Yes (Congenital Anomaly)
  Sender: FDA-Public Use
  Company Number: 8004178

PATIENT
  Age: 1 Day
  Sex: Male

DRUGS (5)
  1. LEVOTHYROX [Suspect]
     Active Substance: LEVOTHYROXINE
     Indication: HYPOTHYROIDISM
     Dosage: PRODUCT TAKEN BY THE MOTHER
  2. RHOPHYLAC [Suspect]
     Active Substance: HUMAN RHO(D) IMMUNE GLOBULIN
     Indication: PRODUCT USED FOR UNKNOWN INDICATION
     Dosage: PRODUCT TAKEN BY THE MOTHER
  3. ZOLOFT [Suspect]
     Active Substance: SERTRALINE HYDROCHLORIDE
     Indication: DEPRESSION
     Dosage: PRODUCT TAKEN BY MOTHER
  4. AMOXICILLINE [Suspect]
     Active Substance: AMOXICILLIN
     Indication: BACTERIAL INFECTION
     Dosage: PRODUCT TAKEN BY THE MOTHER
  5. AMOXICILLINE [Suspect]
     Active Substance: AMOXICILLIN
     Indication: STREPTOCOCCAL INFECTION
     Dosage: PRODUCT TAKEN BY THE MOTHER

REACTIONS (7)
  - Pyelocaliectasis [None]
  - Muscle tone disorder [None]
  - Escherichia infection [None]
  - Vesicoureteric reflux [None]
  - Maternal drugs affecting foetus [None]
  - Neonatal respiratory distress syndrome [None]
  - Pyelonephritis [None]

NARRATIVE: CASE EVENT DATE: 20140808
